FAERS Safety Report 9718156 (Version 1)
Quarter: 2013Q4

REPORT INFORMATION
  Report Type: Not Available
  Country: US (occurrence: US)
  Receive Date: 20131125
  Receipt Date: 20131125
  Transmission Date: 20140711
  Serious: No
  Sender: FDA-Public Use
  Company Number: US-VIVUS-2013V1000524

PATIENT
  Age: 47 Year
  Sex: Female
  Weight: 84.44 kg

DRUGS (7)
  1. QSYMIA 3.75MG/23MG [Suspect]
     Indication: WEIGHT DECREASED
     Route: 048
     Dates: start: 20130710
  2. QSYMIA 3.75MG/23MG [Suspect]
     Indication: TYPE 2 DIABETES MELLITUS
  3. QSYMIA 3.75MG/23MG [Suspect]
     Indication: BLOOD CHOLESTEROL INCREASED
  4. QSYMIA 3.75MG/23MG [Suspect]
     Indication: BLOOD TRIGLYCERIDES INCREASED
  5. GABAPENTIN [Concomitant]
     Indication: NEUROPATHY PERIPHERAL
     Route: 048
     Dates: start: 201207
  6. HUMALOG INSULIN PUMP [Concomitant]
     Indication: TYPE 2 DIABETES MELLITUS
     Route: 058
     Dates: start: 201212
  7. DIAZEPAM [Concomitant]
     Indication: ANXIETY
     Route: 048
     Dates: start: 201207

REACTIONS (1)
  - Paraesthesia [Not Recovered/Not Resolved]
